FAERS Safety Report 13375448 (Version 2)
Quarter: 2018Q1

REPORT INFORMATION
  Report Type: Report from Study
  Country: US (occurrence: US)
  Receive Date: 20170327
  Receipt Date: 20180303
  Transmission Date: 20180508
  Serious: No
  Sender: FDA-Public Use
  Company Number: US-009507513-1703USA004683

PATIENT
  Age: 26 Year
  Sex: Female

DRUGS (2)
  1. NEXPLANON [Suspect]
     Active Substance: ETONOGESTREL
     Indication: CONTRACEPTION
     Dosage: 1 IMPLANT
     Route: 059
     Dates: start: 201409, end: 2017
  2. NEXPLANON [Suspect]
     Active Substance: ETONOGESTREL
     Dosage: 1 DF, UNK
     Route: 059
     Dates: start: 2017

REACTIONS (14)
  - Dysmenorrhoea [Recovered/Resolved]
  - Nervousness [Unknown]
  - Menstruation irregular [Recovered/Resolved]
  - Oligomenorrhoea [Unknown]
  - Menorrhagia [Unknown]
  - Menorrhagia [Recovered/Resolved]
  - Metrorrhagia [Unknown]
  - Menstruation irregular [Unknown]
  - Contusion [Unknown]
  - Agitation [Recovered/Resolved]
  - Fear [Unknown]
  - Mood swings [Unknown]
  - Vaginal haemorrhage [Not Recovered/Not Resolved]
  - Adverse event [Unknown]

NARRATIVE: CASE EVENT DATE: 2014
